FAERS Safety Report 17995201 (Version 1)
Quarter: 2020Q3

REPORT INFORMATION
  Report Type: Spontaneous
  Country: US (occurrence: US)
  Receive Date: 20200708
  Receipt Date: 20200708
  Transmission Date: 20201103
  Serious: Yes (Other)
  Sender: FDA-Public Use
  Company Number: None

PATIENT
  Age: 32 Year
  Sex: Male
  Weight: 124 kg

DRUGS (10)
  1. ZYRTEX 10MG Q24H [Concomitant]
     Dates: start: 20200701
  2. INSULIN [Concomitant]
     Active Substance: INSULIN NOS
     Dates: start: 20200701
  3. REMDESIVIR. [Suspect]
     Active Substance: REMDESIVIR
     Indication: COVID-19
     Route: 040
     Dates: start: 20200702, end: 20200704
  4. LEVOTHYROXINE. [Concomitant]
     Active Substance: LEVOTHYROXINE
     Dates: start: 20200702
  5. MIRALAX [Concomitant]
     Active Substance: POLYETHYLENE GLYCOL 3350
     Dates: start: 20200701
  6. FAMOTIDINE 20MG Q12H [Concomitant]
     Dates: start: 20200702
  7. BENZONATATE 100MG Q8H [Concomitant]
     Dates: start: 20200701
  8. DEXAMETHASONE 6MG QDAY [Concomitant]
     Dates: start: 20200630
  9. GUAIFENISEN 600MG Q12H [Concomitant]
     Dates: start: 20200630
  10. ENOXAPARIN 40MG Q12H [Concomitant]
     Dates: start: 20200702, end: 20200704

REACTIONS (1)
  - Alanine aminotransferase increased [None]

NARRATIVE: CASE EVENT DATE: 20200707
